FAERS Safety Report 5314963-3 (Version None)
Quarter: 2007Q2

REPORT INFORMATION
  Report Type: 
  Country: None (occurrence: None)
  Receive Date: 20070502
  Receipt Date: 20070419
  Transmission Date: 20071010
  Serious: Yes (Other)
  Sender: FDA-Public Use
  Company Number: ZA-ELI_LILLY_AND_COMPANY-ZA200704004445

PATIENT
  Age: 43 Year
  Sex: Female

DRUGS (5)
  1. CYMBALTA [Suspect]
     Indication: BIPOLAR DISORDER
     Dosage: 60 MG, DAILY (1/D)
     Route: 048
     Dates: start: 20061025, end: 20061213
  2. CYMBALTA [Suspect]
     Dosage: 90 MG, DAILY (1/D)
     Route: 048
     Dates: start: 20061214, end: 20070322
  3. TOPAMAX [Concomitant]
     Indication: BIPOLAR DISORDER
     Route: 048
  4. SEROQUEL [Concomitant]
     Indication: BIPOLAR DISORDER
     Route: 048
  5. ZOLPIDEM [Concomitant]
     Indication: INSOMNIA

REACTIONS (1)
  - HEPATITIS TOXIC [None]
